FAERS Safety Report 7554767-4 (Version None)
Quarter: 2011Q2

REPORT INFORMATION
  Report Type: 
  Country: None (occurrence: None)
  Receive Date: 20110610
  Receipt Date: 20110530
  Transmission Date: 20111010
  Serious: Yes (Hospitalization)
  Sender: FDA-Public Use
  Company Number: 940265

PATIENT
  Age: 58 Year
  Sex: Male

DRUGS (2)
  1. FLUOROURACIL [Concomitant]
  2. OXALIPLATIN [Suspect]
     Indication: COLON CANCER
     Dosage: 170 MG MILLIGRAM(S), 1 DAY, INTRAVENOUS (NOT SPECIFIED)
     Route: 042
     Dates: start: 20110523, end: 20110523

REACTIONS (5)
  - PARAESTHESIA [None]
  - TONGUE OEDEMA [None]
  - PRURITUS [None]
  - INFUSION RELATED REACTION [None]
  - APHASIA [None]
